FAERS Safety Report 9225311 (Version 2)
Quarter: 2013Q2

REPORT INFORMATION
  Report Type: Spontaneous
  Country: IT (occurrence: None)
  Receive Date: 20130409
  Receipt Date: 20130411
  Transmission Date: 20140414
  Serious: Yes (Hospitalization)
  Sender: FDA-Public Use
  Company Number: KAD201304-000451

PATIENT
  Age: 60 Year
  Sex: Female
  Weight: 60 kg

DRUGS (3)
  1. RIBAVIRIN [Suspect]
     Indication: HEPATIC CIRRHOSIS
     Dosage: 800 MG, DAILY, TABLET, ORAL
     Route: 048
     Dates: start: 20111219
  2. PEGINTRON [Suspect]
     Indication: HEPATIC CIRRHOSIS
     Dosage: 80 MCG, WEEKLY, POWDER AND SOLVENT FOR SOLUTION FOR INJECTION 1 VIAL GLASS TUBE, SUBCUTANEOUS
     Route: 058
     Dates: start: 20111028
  3. BOCEPREVIR [Suspect]
     Indication: HEPATIC CIRRHOSIS
     Route: 048
     Dates: start: 20111219, end: 20120724

REACTIONS (6)
  - Anaemia [None]
  - Weight decreased [None]
  - Asthenia [None]
  - Pyrexia [None]
  - Decreased appetite [None]
  - Staphylococcal infection [None]
